FAERS Safety Report 21785387 (Version 1)
Quarter: 2022Q4

REPORT INFORMATION
  Report Type: Spontaneous
  Country: US (occurrence: None)
  Receive Date: 20221223
  Receipt Date: 20221223
  Transmission Date: 20230113
  Serious: Yes (Other)
  Sender: FDA-Public Use
  Company Number: None

PATIENT
  Age: 68 Year
  Sex: Male

DRUGS (1)
  1. TACROLIMUS [Suspect]
     Active Substance: TACROLIMUS
     Indication: Transplant
     Dosage: 5MG TWICE DAILY ORALLY
     Route: 048
     Dates: start: 20220608

REACTIONS (2)
  - Hypoaesthesia [None]
  - Vision blurred [None]

NARRATIVE: CASE EVENT DATE: 20220731
